FAERS Safety Report 17728134 (Version 2)
Quarter: 2020Q2

REPORT INFORMATION
  Report Type: Spontaneous
  Country: US (occurrence: US)
  Receive Date: 20200430
  Receipt Date: 20200514
  Transmission Date: 20200714
  Serious: No
  Sender: FDA-Public Use
  Company Number: US-ASTRAZENECA-2020SE56656

PATIENT
  Sex: Female

DRUGS (1)
  1. BYDUREON BCISE [Suspect]
     Active Substance: EXENATIDE
     Dosage: 2 MG 4 COUNT2.0MG UNKNOWN
     Route: 065
     Dates: start: 20200422

REACTIONS (4)
  - Product dose omission [Unknown]
  - Intentional device misuse [Unknown]
  - Device issue [Unknown]
  - Injury associated with device [Unknown]
